FAERS Safety Report 12296435 (Version 1)
Quarter: 2016Q2

REPORT INFORMATION
  Report Type: Spontaneous
  Country: US (occurrence: US)
  Receive Date: 20160422
  Receipt Date: 20160422
  Transmission Date: 20160815
  Serious: Yes (Hospitalization, Other)
  Sender: FDA-Public Use
  Company Number: ADR-2015-01165

PATIENT
  Age: 13 Year
  Sex: Male

DRUGS (1)
  1. LIORESAL [Suspect]
     Active Substance: BACLOFEN
     Dosage: 96.1 MCG/DAY
     Dates: start: 20150609

REACTIONS (6)
  - Implant site infection [Recovered/Resolved]
  - Central nervous system infection [Recovered/Resolved]
  - Pyrexia [Recovered/Resolved]
  - Medical device site infection [Recovered/Resolved]
  - Staphylococcus test positive [Recovered/Resolved]
  - Medical device site erythema [Recovered/Resolved]

NARRATIVE: CASE EVENT DATE: 20150603
